FAERS Safety Report 4781753-X (Version None)
Quarter: 2005Q3

REPORT INFORMATION
  Report Type: 
  Country: None (occurrence: None)
  Receive Date: 20050927
  Receipt Date: 20050912
  Transmission Date: 20060218
  Serious: Yes (Other)
  Sender: FDA-Public Use
  Company Number: USA0509107945

PATIENT
  Sex: Female

DRUGS (1)
  1. EVISTA [Suspect]
     Dates: start: 20050101

REACTIONS (12)
  - BLINDNESS [None]
  - HYPERTENSION [None]
  - MACULAR OEDEMA [None]
  - MULTIPLE MYELOMA [None]
  - OPTIC DISC DRUSEN [None]
  - PAPILLOEDEMA [None]
  - PSEUDOPHAKIA [None]
  - RETINAL HAEMORRHAGE [None]
  - RETINAL VEIN OCCLUSION [None]
  - RETINOPATHY [None]
  - VISUAL ACUITY REDUCED [None]
  - VISUAL DISTURBANCE [None]
